FAERS Safety Report 7284127-5 (Version None)
Quarter: 2011Q1

REPORT INFORMATION
  Report Type: 
  Country: None (occurrence: None)
  Receive Date: 20110131
  Receipt Date: 20110117
  Transmission Date: 20110831
  Serious: Yes (Hospitalization)
  Sender: FDA-Public Use
  Company Number: UTC-004427

PATIENT
  Sex: Female
  Weight: 54.5 kg

DRUGS (3)
  1. REVATIO [Concomitant]
  2. TRACLEER [Concomitant]
  3. TYVASO [Suspect]
     Indication: PULMONARY ARTERIAL HYPERTENSION
     Dosage: (18  MCG), INHALATION
     Route: 055
     Dates: start: 20091113

REACTIONS (1)
  - PNEUMONIA [None]
